FAERS Safety Report 6796324-3 (Version None)
Quarter: 2010Q2

REPORT INFORMATION
  Report Type: 
  Country: None (occurrence: None)
  Receive Date: 20100625
  Receipt Date: 20100617
  Transmission Date: 20101027
  Serious: Yes (Other)
  Sender: FDA-Public Use
  Company Number: US-AMGEN-QUU415338

PATIENT
  Sex: Female
  Weight: 97.2 kg

DRUGS (13)
  1. ARANESP [Suspect]
     Indication: ANAEMIA OF MALIGNANT DISEASE
  2. THALIDOMIDE [Suspect]
     Indication: MULTIPLE MYELOMA
     Route: 048
     Dates: start: 20090625, end: 20091008
  3. DECADRON [Concomitant]
  4. ENALAPRIL MALEATE [Concomitant]
  5. HYDROCHLOROTHIAZIDE [Concomitant]
  6. COUMADIN [Concomitant]
     Route: 048
  7. COUMADIN [Concomitant]
     Route: 048
  8. ZOMETA [Concomitant]
     Route: 042
  9. MULTI-VITAMINS [Concomitant]
     Route: 048
  10. FISH OIL [Concomitant]
  11. GLUCOSAMINE W/CHONDROITIN SULFATES [Concomitant]
     Route: 048
  12. VITAMIN D3 [Concomitant]
  13. ASPIRIN [Concomitant]

REACTIONS (3)
  - ANAEMIA [None]
  - BRADYCARDIA [None]
  - DEEP VEIN THROMBOSIS [None]
